FAERS Safety Report 9364800 (Version 2)
Quarter: 2013Q3

REPORT INFORMATION
  Report Type: Report from Study
  Country: CA (occurrence: CA)
  Receive Date: 20130624
  Receipt Date: 20130819
  Transmission Date: 20140515
  Serious: Yes (Other)
  Sender: FDA-Public Use
  Company Number: CA-ELI_LILLY_AND_COMPANY-CA201306003665

PATIENT
  Age: 80 Year
  Sex: Male

DRUGS (12)
  1. TERIPARATIDE [Suspect]
     Indication: OSTEOPOROSIS
     Dosage: 20 UG, QD
     Route: 058
     Dates: start: 20130115
  2. CALCIUM [Concomitant]
  3. VITAMIN D NOS [Concomitant]
  4. COUMADIN [Concomitant]
  5. AVODART [Concomitant]
  6. MONOCOR [Concomitant]
  7. HYDRAZIDE [Concomitant]
  8. NORVASC [Concomitant]
  9. DITROPAN [Concomitant]
  10. LIPITOR [Concomitant]
  11. NEXIUM [Concomitant]
  12. TYLENOL W/CODEINE [Concomitant]

REACTIONS (1)
  - Neoplasm malignant [Unknown]
